FAERS Safety Report 9451125 (Version 1)
Quarter: 2013Q3

REPORT INFORMATION
  Report Type: Spontaneous
  Country: FR (occurrence: FR)
  Receive Date: 20130809
  Receipt Date: 20130809
  Transmission Date: 20140515
  Serious: Yes (Hospitalization)
  Sender: FDA-Public Use
  Company Number: PHHY2013FR083828

PATIENT
  Age: 54 Year
  Sex: Male

DRUGS (18)
  1. VOLTARENE LP [Suspect]
     Indication: BURSITIS
     Dosage: 1 DF, UNK
     Route: 048
     Dates: start: 20130709, end: 20130715
  2. PYOSTACINE [Suspect]
     Indication: BURSITIS
     Dosage: 2 DF, (3 DAYS)
     Route: 048
     Dates: start: 20130708, end: 20130716
  3. LEVURE DE RIZ ROUGE (MONASCUS PURPUREUS) [Suspect]
     Indication: DYSPEPSIA
     Dosage: 1 DF, (2 DAYS)
     Route: 048
     Dates: start: 20130709
  4. CLAVULANIC ACID [Suspect]
     Indication: BURSITIS
     Dosage: 2 DF, (3 DAYS)
     Dates: start: 20130704
  5. TRAMADOL HCL [Suspect]
     Dosage: 1 DF, UNK
     Route: 048
     Dates: start: 20130710, end: 20130716
  6. AMOXICILLIN [Suspect]
     Indication: BURSITIS
     Dosage: 2 DF, UNK
     Dates: start: 20130704
  7. CIPROFLOXACIN [Suspect]
     Indication: PNEUMONIA ASPIRATION
     Dosage: 1 DF, (2 DAYS)
     Route: 048
     Dates: start: 20130716
  8. LASILIX [Suspect]
     Dosage: 60 MG, UNK
     Route: 048
     Dates: start: 20130716
  9. TIAPROFENIC ACID [Concomitant]
     Indication: BURSITIS
     Dosage: 2 DF, TID
     Dates: start: 20130704
  10. TIAPROFENIC ACID [Concomitant]
     Dosage: UNK UKN, UNK
     Dates: start: 20130708
  11. DIPIPERON [Concomitant]
     Dosage: UNK UKN, UNK
     Dates: start: 201105
  12. NICOBION [Concomitant]
     Dosage: UNK UKN, UNK
  13. MOVICOL [Concomitant]
     Dosage: UNK UKN, UNK
  14. GAVISCON                                /GFR/ [Concomitant]
     Dosage: UNK UKN, UNK
  15. ROHYPNOL [Concomitant]
     Dosage: UNK UKN, UNK
     Dates: start: 200311
  16. GARDENAL SODIUM [Concomitant]
     Dosage: UNK UKN, UNK
     Dates: start: 200201
  17. INEXIUM//ESOMEPRAZOLE SODIUM [Concomitant]
     Dosage: 40 MG, UNK
     Dates: start: 200810
  18. RIVOTRIL [Concomitant]
     Dosage: 2 MG, UNK
     Dates: start: 201104

REACTIONS (1)
  - Agranulocytosis [Not Recovered/Not Resolved]
